FAERS Safety Report 19774340 (Version 1)
Quarter: 2021Q3

REPORT INFORMATION
  Report Type: Spontaneous
  Country: US (occurrence: US)
  Receive Date: 20210901
  Receipt Date: 20210901
  Transmission Date: 20211014
  Serious: No
  Sender: FDA-Public Use
  Company Number: US-AMGEN-USASP2021133227

PATIENT
  Age: 77 Year
  Sex: Female
  Weight: 54.42 kg

DRUGS (1)
  1. EVENITY [Suspect]
     Active Substance: ROMOSOZUMAB-AQQG
     Indication: OSTEOPOROSIS POSTMENOPAUSAL
     Dosage: UNK, UNK
     Route: 065
     Dates: start: 202104

REACTIONS (6)
  - Dental caries [Unknown]
  - Tooth abscess [Unknown]
  - Toothache [Unknown]
  - Urticaria [Unknown]
  - Gingival swelling [Unknown]
  - Mastication disorder [Unknown]

NARRATIVE: CASE EVENT DATE: 2021
